FAERS Safety Report 8539985-0 (Version None)
Quarter: 2012Q3

REPORT INFORMATION
  Report Type: 
  Country: None (occurrence: None)
  Receive Date: 20120726
  Receipt Date: 20120723
  Transmission Date: 20120928
  Serious: Yes (Hospitalization)
  Sender: FDA-Public Use
  Company Number: US-ROCHE-1077714

PATIENT
  Sex: Female
  Weight: 57.204 kg

DRUGS (11)
  1. ZOFRAN [Concomitant]
  2. AVASTIN [Suspect]
     Indication: RENAL CELL CARCINOMA
     Route: 042
     Dates: start: 20120501, end: 20120611
  3. TEMSIROLIMUS [Suspect]
     Indication: RENAL CELL CARCINOMA
     Route: 042
     Dates: start: 20120501, end: 20120611
  4. ATIVAN [Concomitant]
     Indication: ANXIETY
     Route: 048
     Dates: start: 20111220
  5. BACTRIM [Concomitant]
  6. OXYCODONE HCL [Concomitant]
     Indication: PAIN
     Route: 048
  7. BENZONATATE [Concomitant]
  8. OMEPRAZOLE [Concomitant]
     Indication: GASTROOESOPHAGEAL REFLUX DISEASE
     Route: 048
     Dates: start: 20120131
  9. ACETAMINOPHEN [Concomitant]
     Indication: PAIN
     Route: 048
  10. LEVOTHYROXINE SODIUM [Concomitant]
     Indication: HYPOTHYROIDISM
     Route: 048
     Dates: start: 20120312
  11. UREA CREAM [Concomitant]

REACTIONS (3)
  - PLEURITIC PAIN [None]
  - PNEUMOTHORAX [None]
  - DYSPNOEA [None]
